FAERS Safety Report 12920279 (Version 1)
Quarter: 2016Q4

REPORT INFORMATION
  Report Type: Spontaneous
  Country: CN (occurrence: CN)
  Receive Date: 20161107
  Receipt Date: 20161107
  Transmission Date: 20170207
  Serious: Yes (Other)
  Sender: FDA-Public Use
  Company Number: CN-PFIZER INC-2016513209

PATIENT
  Age: 75 Year
  Sex: Male

DRUGS (5)
  1. METHYLPREDNISOLONE. [Concomitant]
     Active Substance: METHYLPREDNISOLONE
     Dosage: 40 MG, DAILY
  2. DIFLUCAN [Suspect]
     Active Substance: FLUCONAZOLE
     Indication: LUNG INFECTION
     Dosage: 400 MG, 1X/DAY
     Route: 041
     Dates: start: 20160701, end: 20160703
  3. AMINOPHYLLINE. [Concomitant]
     Active Substance: AMINOPHYLLINE
     Indication: ASTHMA
     Dosage: 250 MG, 2X/DAY
     Route: 041
     Dates: start: 20160701, end: 20160703
  4. MEROPENEM /01250502/ [Concomitant]
     Active Substance: MEROPENEM
     Indication: LUNG INFECTION
     Dosage: 1 G, 2X/DAY
     Dates: start: 20160701, end: 20160702
  5. DIFLUCAN [Suspect]
     Active Substance: FLUCONAZOLE
     Dosage: 200 MG, DAILY
     Dates: start: 20160704

REACTIONS (1)
  - Delirium [Recovering/Resolving]

NARRATIVE: CASE EVENT DATE: 201607
